FAERS Safety Report 21822067 (Version 1)
Quarter: 2023Q1

REPORT INFORMATION
  Report Type: Spontaneous
  Country: US (occurrence: US)
  Receive Date: 20230105
  Receipt Date: 20230105
  Transmission Date: 20230418
  Serious: No
  Sender: FDA-Public Use
  Company Number: US-BRISTOL-MYERS SQUIBB COMPANY-2023-001707

PATIENT
  Sex: Female

DRUGS (2)
  1. CAMZYOS [Suspect]
     Active Substance: MAVACAMTEN
     Indication: Product used for unknown indication
     Dates: start: 20221103
  2. CAMZYOS [Suspect]
     Active Substance: MAVACAMTEN
     Dates: start: 20221212

REACTIONS (1)
  - Dyspnoea [Recovering/Resolving]
